FAERS Safety Report 19700298 (Version 1)
Quarter: 2021Q3

REPORT INFORMATION
  Report Type: Report from Study
  Country: FR (occurrence: FR)
  Receive Date: 20210813
  Receipt Date: 20210813
  Transmission Date: 20211014
  Serious: Yes (Other)
  Sender: FDA-Public Use
  Company Number: FR-MYLANLABS-2021M1051572

PATIENT

DRUGS (1)
  1. PREGABALIN. [Suspect]
     Active Substance: PREGABALIN
     Indication: PRODUCT USED FOR UNKNOWN INDICATION
     Dosage: IMMEDIATE?RELEASE CAPSULE
     Route: 048

REACTIONS (5)
  - Vertigo [Unknown]
  - Accidental exposure to product by child [Unknown]
  - Mydriasis [Unknown]
  - Dysarthria [Unknown]
  - Abdominal pain [Unknown]
